FAERS Safety Report 12398321 (Version 2)
Quarter: 2016Q2

REPORT INFORMATION
  Report Type: Spontaneous
  Country: US (occurrence: US)
  Receive Date: 20160524
  Receipt Date: 20160617
  Transmission Date: 20160815
  Serious: Yes (Hospitalization)
  Sender: FDA-Public Use
  Company Number: US-SA-2016SA097368

PATIENT
  Age: 72 Year
  Sex: Female

DRUGS (8)
  1. PRALUENT [Suspect]
     Active Substance: ALIROCUMAB
     Indication: BLOOD TRIGLYCERIDES INCREASED
     Route: 058
     Dates: start: 201509, end: 20160423
  2. ALIROCUMAB PREFILLED PEN [Concomitant]
     Active Substance: ALIROCUMAB
     Indication: BLOOD CHOLESTEROL INCREASED
     Route: 058
     Dates: start: 201509, end: 20160423
  3. ALIROCUMAB PREFILLED PEN [Concomitant]
     Active Substance: ALIROCUMAB
     Indication: BLOOD CHOLESTEROL INCREASED
     Dates: end: 20160614
  4. PRALUENT [Suspect]
     Active Substance: ALIROCUMAB
     Indication: BLOOD CHOLESTEROL INCREASED
     Route: 065
     Dates: end: 20160614
  5. ALIROCUMAB PREFILLED PEN [Concomitant]
     Active Substance: ALIROCUMAB
     Indication: BLOOD TRIGLYCERIDES INCREASED
     Route: 058
     Dates: start: 201509, end: 20160423
  6. ALIROCUMAB PREFILLED PEN [Concomitant]
     Active Substance: ALIROCUMAB
     Indication: BLOOD TRIGLYCERIDES INCREASED
     Dates: end: 20160614
  7. PRALUENT [Suspect]
     Active Substance: ALIROCUMAB
     Indication: BLOOD TRIGLYCERIDES INCREASED
     Route: 065
     Dates: end: 20160614
  8. PRALUENT [Suspect]
     Active Substance: ALIROCUMAB
     Indication: BLOOD CHOLESTEROL INCREASED
     Route: 058
     Dates: start: 201509, end: 20160423

REACTIONS (6)
  - Pruritus [Not Recovered/Not Resolved]
  - Atrial fibrillation [Not Recovered/Not Resolved]
  - Urinary tract infection [Not Recovered/Not Resolved]
  - Platelet disorder [Not Recovered/Not Resolved]
  - Aortic stenosis [Not Recovered/Not Resolved]
  - Coronary artery occlusion [Not Recovered/Not Resolved]
